FAERS Safety Report 8953155 (Version 1)
Quarter: 2012Q4

REPORT INFORMATION
  Report Type: 
  Country: US (occurrence: US)
  Receive Date: 20121205
  Receipt Date: 20121205
  Transmission Date: 20130627
  Serious: Yes (Death, Hospitalization, Other)
  Sender: FDA-Public Use
  Company Number: US-AMGEN-USASP2012077146

PATIENT
  Age: 78 Year
  Sex: Female

DRUGS (1)
  1. ENBREL [Suspect]
     Indication: RHEUMATOID ARTHRITIS
     Dosage: 50 mg, q2wk

REACTIONS (8)
  - Cardiac arrest [Fatal]
  - Respiratory arrest [Fatal]
  - Atelectasis [Recovered/Resolved]
  - Ileus [Recovered/Resolved]
  - Intestinal perforation [Recovered/Resolved]
  - Urinary tract infection [Recovered/Resolved]
  - Rib fracture [Recovered/Resolved]
  - Scapula fracture [Recovered/Resolved]
